FAERS Safety Report 5815648-7 (Version None)
Quarter: 2008Q3

REPORT INFORMATION
  Report Type: 
  Country: None (occurrence: None)
  Receive Date: 20080716
  Receipt Date: 20080711
  Transmission Date: 20090109
  Serious: Yes (Death, Life-Threatening, Hospitalization, Other)
  Sender: FDA-Public Use
  Company Number: 163-21880-08070568

PATIENT
  Age: 68 Year
  Sex: Male
  Weight: 79.4 kg

DRUGS (6)
  1. REVLIMID [Suspect]
     Indication: MULTIPLE MYELOMA
     Dosage: ORAL, 15 MG, ORAL
     Route: 048
     Dates: start: 20050929, end: 20051101
  2. REVLIMID [Suspect]
     Indication: MULTIPLE MYELOMA
     Dosage: ORAL, 15 MG, ORAL
     Route: 048
     Dates: start: 20051104, end: 20051116
  3. CC-5013/PLACEBO (LENALIDOMIDE) (CAPSULES) [Suspect]
     Indication: MULTIPLE MYELOMA
     Dosage: ORAL
     Route: 048
     Dates: start: 20050713, end: 20050928
  4. DEXAMETHASONE [Suspect]
     Indication: MULTIPLE MYELOMA
     Dosage: ORAL, ORAL, 15 MG, ORAL
     Route: 048
     Dates: start: 20050929, end: 20050101
  5. DEXAMETHASONE [Suspect]
     Indication: MULTIPLE MYELOMA
     Dosage: ORAL, ORAL, 15 MG, ORAL
     Route: 048
     Dates: start: 20051104, end: 20051116
  6. DEXAMETHASONE [Suspect]
     Indication: MULTIPLE MYELOMA
     Dosage: ORAL, ORAL, 15 MG, ORAL
     Route: 048
     Dates: start: 20050101

REACTIONS (8)
  - ATRIAL FIBRILLATION [None]
  - BONE MARROW DISORDER [None]
  - CARDIO-RESPIRATORY ARREST [None]
  - HAEMODIALYSIS [None]
  - HYPOTENSION [None]
  - HYPOXIA [None]
  - NEUTROPENIA [None]
  - RENAL FAILURE ACUTE [None]
